FAERS Safety Report 14832539 (Version 1)
Quarter: 2018Q2

REPORT INFORMATION
  Report Type: Spontaneous
  Country: DE (occurrence: DE)
  Receive Date: 20180501
  Receipt Date: 20180501
  Transmission Date: 20180711
  Serious: Yes (Hospitalization, Disabling, Other)
  Sender: FDA-Public Use
  Company Number: DE-VALIDUS PHARMACEUTICALS LLC-DE-2018VAL000687

PATIENT
  Age: 21 Year
  Sex: Male

DRUGS (6)
  1. CABERGOLINE. [Suspect]
     Active Substance: CABERGOLINE
     Indication: PROLACTIN-PRODUCING PITUITARY TUMOUR
     Dosage: 4 MG, WEEKLY
     Dates: start: 20011203
  2. BROMOCRIPTINE MESYLATE [Suspect]
     Active Substance: BROMOCRIPTINE MESYLATE
     Indication: PROLACTIN-PRODUCING PITUITARY TUMOUR
  3. QUINAGOLIDE [Suspect]
     Active Substance: QUINAGOLIDE
     Indication: HYPERPROLACTINAEMIA
     Dosage: UNK
     Dates: start: 19980903, end: 19990301
  4. QUINAGOLIDE [Suspect]
     Active Substance: QUINAGOLIDE
     Indication: PROLACTIN-PRODUCING PITUITARY TUMOUR
     Dosage: UNK
     Dates: start: 19990624, end: 20011203
  5. BROMOCRIPTINE MESYLATE [Suspect]
     Active Substance: BROMOCRIPTINE MESYLATE
     Indication: HYPERPROLACTINAEMIA
     Dosage: 40 MG, UNK
  6. CABERGOLINE. [Suspect]
     Active Substance: CABERGOLINE
     Indication: HYPERPROLACTINAEMIA
     Dosage: UNK
     Dates: start: 19981002, end: 19991007

REACTIONS (3)
  - Borderline personality disorder [Recovered/Resolved]
  - Major depression [Recovered/Resolved]
  - Gambling disorder [Recovered/Resolved]
